FAERS Safety Report 8544029-0 (Version None)
Quarter: 2012Q3

REPORT INFORMATION
  Report Type: 
  Country: None (occurrence: None)
  Receive Date: 20120719
  Receipt Date: 20120719
  Transmission Date: 20120928
  Serious: Yes (Other)
  Sender: FDA-Public Use
  Company Number: None

PATIENT
  Sex: Male

DRUGS (4)
  1. CARISOPRODOL 350 MG AUROBINDO PHARMA LIMITED [Suspect]
     Indication: ROAD TRAFFIC ACCIDENT
     Dosage: 350 MG THREE A DAY PO
     Route: 048
     Dates: start: 20110201, end: 20120704
  2. ZYPREXA [Concomitant]
  3. QPAP [Concomitant]
  4. OMEPRAZOLE [Concomitant]

REACTIONS (2)
  - PALPITATIONS [None]
  - FEELING ABNORMAL [None]
